FAERS Safety Report 22646817 (Version 1)
Quarter: 2023Q2

REPORT INFORMATION
  Report Type: Spontaneous
  Country: US (occurrence: US)
  Receive Date: 20230627
  Receipt Date: 20230627
  Transmission Date: 20230722
  Serious: Yes (Hospitalization, Other)
  Sender: FDA-Public Use
  Company Number: US-TAKEDA-2023TUS061047

PATIENT
  Sex: Female
  Weight: 68 kg

DRUGS (4)
  1. LIALDA [Suspect]
     Active Substance: MESALAMINE
     Indication: Crohn^s disease
     Dosage: 1.2 GRAM, QID
     Route: 048
  2. ENTYVIO [Suspect]
     Active Substance: VEDOLIZUMAB
     Indication: Crohn^s disease
     Dosage: UNK
     Route: 065
  3. ENTYVIO [Suspect]
     Active Substance: VEDOLIZUMAB
     Dosage: UNK UNK, MONTHLY
     Route: 065
  4. ELIQUIS [Concomitant]
     Active Substance: APIXABAN
     Indication: Coagulopathy
     Dosage: UNK
     Route: 065

REACTIONS (11)
  - Illness [Not Recovered/Not Resolved]
  - Splenomegaly [Unknown]
  - Thrombosis [Unknown]
  - Gait inability [Unknown]
  - Insomnia [Unknown]
  - Abdominal pain upper [Not Recovered/Not Resolved]
  - Fatigue [Unknown]
  - Muscular weakness [Unknown]
  - Decreased appetite [Unknown]
  - Product availability issue [Unknown]
  - Asthenia [Unknown]
